FAERS Safety Report 6242473-8 (Version None)
Quarter: 2009Q2

REPORT INFORMATION
  Report Type: 
  Country: None (occurrence: None)
  Receive Date: 20090622
  Receipt Date: 20090622
  Transmission Date: 20091009
  Serious: Yes (Other)
  Sender: FDA-Public Use
  Company Number: None

PATIENT
  Age: 76 Year
  Sex: Male
  Weight: 114 kg

DRUGS (6)
  1. GUAIFENESIN [Suspect]
     Indication: COUGH
     Dosage: 10 ML, 4 TIMES IN A DAY
     Dates: start: 20090506, end: 20090506
  2. ASPIRIN [Concomitant]
  3. LATANOPROST [Concomitant]
  4. LOSEC /CAN/ (OMEPRAZOLE MAGNESIUM) [Concomitant]
  5. RAMIPRIL [Concomitant]
  6. SIMVASTATIN (SIMVASTATIN) [Concomitant]

REACTIONS (5)
  - ABDOMINAL PAIN [None]
  - ASTHENIA [None]
  - DIARRHOEA [None]
  - TREMOR [None]
  - URINARY INCONTINENCE [None]
